FAERS Safety Report 7808399-0 (Version None)
Quarter: 2011Q4

REPORT INFORMATION
  Report Type: 
  Country: None (occurrence: None)
  Receive Date: 20111011
  Receipt Date: 20111011
  Transmission Date: 20120403
  Serious: No
  Sender: FDA-Public Use
  Company Number: None

PATIENT
  Sex: Female

DRUGS (9)
  1. GABAPENTIN [Concomitant]
  2. VYVANSE [Concomitant]
  3. CLONAZEPAM [Concomitant]
  4. BUPROPION HYDROCHLORIDE [Suspect]
     Indication: POST-TRAUMATIC STRESS DISORDER
     Dosage: 150 MG DAILY PO
     Route: 048
  5. ALPRAZOLAM [Concomitant]
  6. CHLORPROMAZINE [Concomitant]
  7. SEROQUEL XR [Concomitant]
  8. LUNESTA [Concomitant]
  9. CLONIDINE [Concomitant]

REACTIONS (1)
  - HALLUCINATION [None]
